FAERS Safety Report 5711967-3 (Version None)
Quarter: 2008Q2

REPORT INFORMATION
  Report Type: 
  Country: None (occurrence: None)
  Receive Date: 20080421
  Receipt Date: 20080415
  Transmission Date: 20081010
  Serious: Yes (Hospitalization)
  Sender: FDA-Public Use
  Company Number: US-GILEAD-2008-0016050

PATIENT
  Sex: Female
  Weight: 80.358 kg

DRUGS (6)
  1. TRUVADA [Suspect]
     Indication: HIV INFECTION
     Route: 048
     Dates: start: 20070920
  2. ZIDOVUDINE [Suspect]
     Indication: HIV INFECTION
     Route: 048
  3. PREZISTA [Suspect]
     Indication: HIV INFECTION
     Route: 048
  4. TRIMETHOPRIM [Concomitant]
     Indication: ANTIFUNGAL PROPHYLAXIS
     Route: 048
  5. FLUOXETINE [Concomitant]
     Indication: DEPRESSION
     Route: 048
  6. DAPSONE [Concomitant]
     Indication: ANTIFUNGAL PROPHYLAXIS
     Route: 048

REACTIONS (1)
  - PNEUMONIA [None]
